FAERS Safety Report 21520532 (Version 6)
Quarter: 2022Q4

REPORT INFORMATION
  Report Type: Spontaneous
  Country: AU (occurrence: AU)
  Receive Date: 20221028
  Receipt Date: 20221221
  Transmission Date: 20230112
  Serious: Yes (Other)
  Sender: FDA-Public Use
  Company Number: AU-GLAXOSMITHKLINE-AU2022APC151197

PATIENT

DRUGS (1)
  1. ALBUTEROL SULFATE [Suspect]
     Active Substance: ALBUTEROL SULFATE
     Indication: Product used for unknown indication
     Dosage: 100 UG
     Route: 055
     Dates: start: 20221020

REACTIONS (8)
  - Near death experience [Unknown]
  - Dyspnoea [Unknown]
  - Nasopharyngitis [Unknown]
  - Wrong technique in device usage process [Unknown]
  - Incorrect dose administered by device [Unknown]
  - Incorrect dose administered [Unknown]
  - Product delivery mechanism issue [Unknown]
  - Product complaint [Unknown]

NARRATIVE: CASE EVENT DATE: 20221020
